FAERS Safety Report 23241901 (Version 3)
Quarter: 2024Q4

REPORT INFORMATION
  Report Type: Spontaneous
  Country: ZA (occurrence: ZA)
  Receive Date: 20231129
  Receipt Date: 20241223
  Transmission Date: 20250115
  Serious: Yes (Other)
  Sender: PFIZER
  Company Number: ZA-PFIZER INC-PV202300192764

PATIENT
  Age: 53 Year
  Sex: Female
  Weight: 76 kg

DRUGS (4)
  1. METHOTREXATE SODIUM [Suspect]
     Active Substance: METHOTREXATE SODIUM
     Dosage: 20 MG
     Dates: start: 201710
  2. SULFASALAZINE [Suspect]
     Active Substance: SULFASALAZINE
     Dosage: 2000 MG
     Dates: start: 201710, end: 201712
  3. CHLOROQUINE [Suspect]
     Active Substance: CHLOROQUINE
     Dosage: 200 MG
     Dates: start: 201710, end: 201712
  4. UPADACITINIB [Concomitant]
     Active Substance: UPADACITINIB
     Dosage: 15 MG
     Dates: start: 2019, end: 2022

REACTIONS (2)
  - Psoriatic arthropathy [Unknown]
  - Drug ineffective [Unknown]

NARRATIVE: CASE EVENT DATE: 20170101
